FAERS Safety Report 8573501-2 (Version None)
Quarter: 2012Q3

REPORT INFORMATION
  Report Type: 
  Country: None (occurrence: None)
  Receive Date: 20120806
  Receipt Date: 20120731
  Transmission Date: 20120928
  Serious: Yes (Death, Other)
  Sender: FDA-Public Use
  Company Number: US-INCYTE CORPORATION-2012IN001112

PATIENT
  Sex: Male
  Weight: 114.29 kg

DRUGS (3)
  1. LEXAPRO [Concomitant]
  2. JAKAFI [Suspect]
     Indication: MYELOFIBROSIS
     Dosage: 10 MG, BID
     Route: 048
     Dates: start: 20110420, end: 20120619
  3. METFORMIN HYDROCHLORIDE [Concomitant]

REACTIONS (1)
  - METASTATIC MALIGNANT MELANOMA [None]
